FAERS Safety Report 5796105-3 (Version None)
Quarter: 2008Q3

REPORT INFORMATION
  Report Type: 
  Country: None (occurrence: None)
  Receive Date: 20080701
  Receipt Date: 20080624
  Transmission Date: 20090109
  Serious: Yes (Death, Hospitalization)
  Sender: FDA-Public Use
  Company Number: MW-BRISTOL-MYERS SQUIBB COMPANY-14238471

PATIENT
  Age: 36 Year
  Sex: Male
  Weight: 60 kg

DRUGS (12)
  1. SUSTIVA [Suspect]
     Indication: HIV INFECTION
     Dosage: LAST DOSE ON 16-APR-2008, RESTARTED ON 12-MAY-2008. AT BEDTIME
     Route: 048
     Dates: start: 20060817, end: 20080526
  2. ZERIT [Suspect]
     Indication: HIV INFECTION
     Route: 048
     Dates: start: 20080512, end: 20080526
  3. COMBIVIR [Suspect]
     Indication: HIV INFECTION
     Dosage: DOSAGEFORM=TABLET,LAST DOSE ON 16-APR-2008.
     Route: 048
     Dates: start: 20060817, end: 20080416
  4. EPIVIR [Suspect]
     Indication: HIV INFECTION
     Route: 048
     Dates: start: 20080512, end: 20080526
  5. STREPTOMYCIN [Concomitant]
     Indication: TUBERCULOSIS
     Dates: start: 20080318
  6. RIFAMPICIN [Concomitant]
     Indication: TUBERCULOSIS
     Dates: start: 20080318
  7. ISONIAZID [Concomitant]
     Indication: TUBERCULOSIS
     Dates: start: 20080318
  8. PYRAZINAMIDE [Concomitant]
     Indication: TUBERCULOSIS
     Dates: start: 20080318
  9. CO-TRIMOXAZOLE [Concomitant]
     Indication: PROPHYLAXIS
     Dates: start: 20080512
  10. FERROUS SULFATE TAB [Concomitant]
     Indication: ANAEMIA
     Dates: start: 20080520
  11. BRUFEN [Concomitant]
     Indication: PYREXIA
     Dates: start: 20080520
  12. ETHAMBUTOL HYDROCHLORIDE [Concomitant]
     Indication: TUBERCULOSIS
     Dates: start: 20080318

REACTIONS (9)
  - ANAEMIA [None]
  - ASTHENIA [None]
  - HEPATITIS [None]
  - HYPONATRAEMIA [None]
  - MALARIA [None]
  - PNEUMONIA [None]
  - SEPSIS [None]
  - THROMBOCYTOPENIA [None]
  - VOMITING [None]
